FAERS Safety Report 7485825-0 (Version None)
Quarter: 2011Q2

REPORT INFORMATION
  Report Type: 
  Country: None (occurrence: None)
  Receive Date: 20110517
  Receipt Date: 20110110
  Transmission Date: 20111010
  Serious: Yes (Hospitalization, Other)
  Sender: FDA-Public Use
  Company Number: US-BAYER-201021021NA

PATIENT
  Sex: Female

DRUGS (4)
  1. DROSPIRENONE AND ETHINYL ESTRADIOL [Suspect]
  2. YASMIN [Suspect]
     Dosage: UNK
     Route: 048
     Dates: start: 20070201
  3. DROSPIRENONE AND ETHINYL ESTRADIOL [Suspect]
     Indication: PRODUCT USED FOR UNKNOWN INDICATION
     Route: 048
  4. YAZ [Suspect]
     Route: 048

REACTIONS (2)
  - ABDOMINAL PAIN [None]
  - GALLBLADDER DISORDER [None]
